FAERS Safety Report 11383715 (Version 1)
Quarter: 2015Q3

REPORT INFORMATION
  Report Type: Report from Study
  Country: JP (occurrence: JP)
  Receive Date: 20150814
  Receipt Date: 20150814
  Transmission Date: 20151125
  Serious: Yes (Hospitalization)
  Sender: FDA-Public Use
  Company Number: JP-ASTRAZENECA-2015SE77515

PATIENT
  Age: 70 Year
  Sex: Female
  Weight: 51 kg

DRUGS (11)
  1. BUFFERIN [Concomitant]
     Active Substance: ASPIRIN
     Indication: MYOCARDIAL INFARCTION
     Route: 048
     Dates: start: 20060320
  2. BLOPRESS [Concomitant]
     Active Substance: CANDESARTAN CILEXETIL
     Indication: HYPERTENSION
     Route: 048
     Dates: start: 20071111
  3. ANTEBATE [Concomitant]
     Active Substance: BETAMETHASONE DIPROPIONATE
     Indication: XERODERMA
     Dates: start: 20100222
  4. ARIMIDEX [Suspect]
     Active Substance: ANASTROZOLE
     Indication: BREAST CANCER FEMALE
     Route: 048
     Dates: start: 20080218
  5. HIRUDOID [Concomitant]
     Active Substance: GLYCOSAMINOGLYCANS
     Indication: XERODERMA
     Dates: start: 20100222
  6. ONEALFA [Concomitant]
     Active Substance: ALFACALCIDOL
     Route: 048
     Dates: start: 20100302
  7. HOKUNALIN [Concomitant]
     Active Substance: TULOBUTEROL
     Indication: BRONCHITIS CHRONIC
     Dates: start: 20070508
  8. ZETIA [Concomitant]
     Active Substance: EZETIMIBE
     Indication: HYPERLIPIDAEMIA
     Route: 048
     Dates: start: 20071113
  9. FEMARA [Suspect]
     Active Substance: LETROZOLE
     Indication: BREAST CANCER FEMALE
     Route: 065
     Dates: start: 20080218
  10. RESTAMIN [Concomitant]
     Active Substance: DIPHENHYDRAMINE
     Indication: XERODERMA
     Dates: start: 20060323
  11. BENET [Concomitant]
     Active Substance: RISEDRONATE SODIUM
     Indication: OSTEOPOROSIS
     Route: 048
     Dates: start: 20100304

REACTIONS (2)
  - Osteoporosis [Not Recovered/Not Resolved]
  - Aortic aneurysm [Not Recovered/Not Resolved]

NARRATIVE: CASE EVENT DATE: 20100225
